FAERS Safety Report 10075752 (Version 2)
Quarter: 2014Q2

REPORT INFORMATION
  Report Type: Spontaneous
  Country: US (occurrence: US)
  Receive Date: 20140414
  Receipt Date: 20140506
  Transmission Date: 20141212
  Serious: Yes (Disabling)
  Sender: FDA-Public Use
  Company Number: US-AMGEN INC.-USASP2014025129

PATIENT
  Age: 73 Year
  Sex: Male
  Weight: 81.63 kg

DRUGS (8)
  1. SENSIPAR [Suspect]
     Indication: HYPERPARATHYROIDISM SECONDARY
     Dosage: 60 MG, DAILY
     Route: 065
     Dates: start: 20131102, end: 20131115
  2. RENVELA [Concomitant]
     Indication: PHOSPHORUS METABOLISM DISORDER
     Dosage: 800 MG, TID
     Route: 048
  3. JANUVIA [Concomitant]
     Indication: TYPE 2 DIABETES MELLITUS
     Dosage: 100 MG, DAILY
     Route: 048
  4. FOSINOPRIL [Concomitant]
     Indication: HYPERTENSION
     Dosage: 40 MG, DAILY
     Route: 047
  5. IMDUR [Concomitant]
     Indication: CORONARY ARTERY DISEASE
     Dosage: 30 MG, DAILY
     Route: 048
  6. IMDUR [Concomitant]
  7. METOPROLOL [Concomitant]
     Indication: CORONARY ARTERY DISEASE
     Dosage: 50 MG, DAILY
     Route: 048
  8. METOPROLOL [Concomitant]
     Indication: HYPERTENSION

REACTIONS (2)
  - Dyspnoea [Recovered/Resolved]
  - Abdominal discomfort [Recovered/Resolved]
